FAERS Safety Report 15660660 (Version 2)
Quarter: 2018Q4

REPORT INFORMATION
  Report Type: Spontaneous
  Country: US (occurrence: US)
  Receive Date: 20181127
  Receipt Date: 20181203
  Transmission Date: 20190205
  Serious: Yes (Other)
  Sender: FDA-Public Use
  Company Number: US-ASTRAZENECA-2018SF44991

PATIENT
  Age: 17677 Day
  Sex: Male
  Weight: 70.7 kg

DRUGS (1)
  1. FASENRA [Suspect]
     Active Substance: BENRALIZUMAB
     Indication: ASTHMA
     Dosage: 30 MG, ONCE EVERY 4 WEEKS FOR THE FIRST 3 DOSES THEN ONCE EVERY 8 WEEKS THEREAFTER
     Route: 058
     Dates: start: 20181031

REACTIONS (5)
  - Adverse event [Unknown]
  - Chills [Unknown]
  - Influenza like illness [Unknown]
  - Pyrexia [Unknown]
  - Vomiting [Unknown]

NARRATIVE: CASE EVENT DATE: 20181031
